FAERS Safety Report 6285688-5 (Version None)
Quarter: 2009Q3

REPORT INFORMATION
  Report Type: 
  Country: None (occurrence: None)
  Receive Date: 20090724
  Receipt Date: 20090713
  Transmission Date: 20100115
  Serious: Yes (Other)
  Sender: FDA-Public Use
  Company Number: 230797K09USA

PATIENT
  Age: 39 Year
  Sex: Female
  Weight: 50 kg

DRUGS (3)
  1. REBIF [Suspect]
     Indication: MULTIPLE SCLEROSIS
     Dosage: 44 MCG, 3 IN 1 WEEKS, SUBCUTANEOUS
     Route: 058
     Dates: start: 20080321
  2. VITAMIN D [Concomitant]
  3. FLUOXETINE [Concomitant]

REACTIONS (5)
  - CHEST PAIN [None]
  - HYPERTHYROIDISM [None]
  - HYPOKALAEMIA [None]
  - PALPITATIONS [None]
  - VENTRICULAR EXTRASYSTOLES [None]
